FAERS Safety Report 24250693 (Version 1)
Quarter: 2024Q3

REPORT INFORMATION
  Report Type: Spontaneous
  Country: US (occurrence: US)
  Receive Date: 20240826
  Receipt Date: 20240826
  Transmission Date: 20241016
  Serious: No
  Sender: BAYER
  Company Number: US-BAYER-2024A120846

PATIENT
  Age: 21 Year
  Sex: Female

DRUGS (1)
  1. MIRENA [Suspect]
     Active Substance: LEVONORGESTREL
     Indication: Contraception
     Dosage: 20?G/DAY
     Route: 015
     Dates: start: 20240820, end: 20240820

REACTIONS (4)
  - Procedural pain [None]
  - Complication of device insertion [None]
  - Device difficult to use [None]
  - Adverse event [None]

NARRATIVE: CASE EVENT DATE: 20240820
